FAERS Safety Report 18544612 (Version 6)
Quarter: 2020Q4

REPORT INFORMATION
  Report Type: Spontaneous
  Country: PL (occurrence: PL)
  Receive Date: 20201125
  Receipt Date: 20201224
  Transmission Date: 20210114
  Serious: Yes (Life-Threatening, Hospitalization, Other)
  Sender: FDA-Public Use
  Company Number: NVSC2020PL305626

PATIENT
  Age: 43 Year
  Sex: Male

DRUGS (10)
  1. DASATINIB. [Suspect]
     Active Substance: DASATINIB
     Dosage: UNK
     Route: 048
     Dates: start: 201307, end: 201408
  2. CYTARABINE. [Suspect]
     Active Substance: CYTARABINE
     Indication: CHRONIC MYELOID LEUKAEMIA
     Dosage: UNK
     Route: 058
  3. DASATINIB. [Suspect]
     Active Substance: DASATINIB
     Indication: CHRONIC MYELOID LEUKAEMIA
     Dosage: 100 MG, PER DAY
     Route: 065
  4. DASATINIB. [Suspect]
     Active Substance: DASATINIB
     Dosage: UNK
     Route: 048
     Dates: start: 2016, end: 2016
  5. DASATINIB. [Suspect]
     Active Substance: DASATINIB
     Dosage: 50 MG, PER DAY
     Route: 065
  6. DASATINIB. [Suspect]
     Active Substance: DASATINIB
     Dosage: UNK
     Route: 048
     Dates: start: 2014, end: 201605
  7. HYDROXYUREA. [Suspect]
     Active Substance: HYDROXYUREA
     Indication: CHRONIC MYELOID LEUKAEMIA
     Dosage: UNK
     Route: 065
  8. DASATINIB. [Suspect]
     Active Substance: DASATINIB
     Dosage: UNK, ALTERNATING BETWEEN DOSES OF 50 MG/DAY AND 100 MG/DAY
     Route: 048
     Dates: start: 201409, end: 2014
  9. IMATINIB. [Suspect]
     Active Substance: IMATINIB MESYLATE
     Indication: CHRONIC MYELOID LEUKAEMIA
     Dosage: 400 MG, QD
     Route: 065
     Dates: start: 201210, end: 201307
  10. DASATINIB. [Suspect]
     Active Substance: DASATINIB
     Dosage: UNK
     Route: 048
     Dates: start: 201611, end: 201705

REACTIONS (15)
  - Treatment failure [Recovered/Resolved]
  - Bacterial sepsis [Unknown]
  - Therapeutic product effect incomplete [Unknown]
  - Lung opacity [Unknown]
  - Pneumonia [Unknown]
  - Sepsis [Unknown]
  - Therapeutic response decreased [Unknown]
  - Thrombocytopenia [Unknown]
  - Thrombocytopenia [Unknown]
  - Pleural effusion [Unknown]
  - Pleural effusion [Unknown]
  - Pulmonary tuberculosis [Unknown]
  - Drug resistance [Unknown]
  - Acquired gene mutation [Unknown]
  - Loss of therapeutic response [Recovered/Resolved]

NARRATIVE: CASE EVENT DATE: 201305
